FAERS Safety Report 20728906 (Version 1)
Quarter: 2022Q2

REPORT INFORMATION
  Report Type: Spontaneous
  Country: JP (occurrence: JP)
  Receive Date: 20220420
  Receipt Date: 20220420
  Transmission Date: 20220721
  Serious: Yes (Other)
  Sender: FDA-Public Use
  Company Number: JP-BAYER-2022A052975

PATIENT
  Sex: Male

DRUGS (1)
  1. EYLEA [Suspect]
     Active Substance: AFLIBERCEPT
     Indication: Product used for unknown indication
     Dosage: ADMINISTERED TWICE TO THE LEFT AND RIGHT EYES

REACTIONS (7)
  - Paralysis [Unknown]
  - Incorrect dose administered [Unknown]
  - Product communication issue [Unknown]
  - Pain [Unknown]
  - Blood pressure increased [Unknown]
  - Dyspnoea [Unknown]
  - Injection site pain [Unknown]
